FAERS Safety Report 9070975 (Version 1)
Quarter: 2013Q1

REPORT INFORMATION
  Report Type: Report from Study
  Country: JP (occurrence: JP)
  Receive Date: 20130129
  Receipt Date: 20130129
  Transmission Date: 20140127
  Serious: Yes (Other)
  Sender: FDA-Public Use
  Company Number: JP-GLAXOSMITHKLINE-B0860672A

PATIENT
  Age: 34 None
  Sex: Female
  Weight: 44 kg

DRUGS (5)
  1. PAXIL [Suspect]
     Indication: SOCIAL PHOBIA
     Dosage: 10MG PER DAY
     Route: 048
     Dates: start: 20100618, end: 20100730
  2. JZOLOFT [Concomitant]
     Indication: SOCIAL PHOBIA
     Route: 048
     Dates: start: 200904, end: 20100730
  3. HALCION [Concomitant]
     Route: 048
     Dates: end: 20100730
  4. POLYFUL [Concomitant]
     Route: 048
     Dates: end: 20100730
  5. GASTER D [Concomitant]
     Route: 048

REACTIONS (1)
  - Self injurious behaviour [Recovered/Resolved]
